FAERS Safety Report 17205105 (Version 1)
Quarter: 2019Q4

REPORT INFORMATION
  Report Type: Spontaneous
  Country: DE (occurrence: DE)
  Receive Date: 20191227
  Receipt Date: 20191227
  Transmission Date: 20200122
  Serious: Yes (Other)
  Sender: FDA-Public Use
  Company Number: DE-AUROBINDO-AUR-APL-2019-108236

PATIENT
  Age: 71 Year
  Sex: Female

DRUGS (13)
  1. OXALIPLATIN. [Suspect]
     Active Substance: OXALIPLATIN
     Indication: RECTAL CANCER
     Dosage: 127.1 MILLIGRAM
     Route: 042
     Dates: start: 20190910, end: 20190910
  2. FOLIC ACID. [Concomitant]
     Active Substance: FOLIC ACID
     Indication: FOLATE DEFICIENCY
     Dosage: 5 MILLIGRAM, EVERY WEEK
     Route: 065
  3. NOVAMINSULFON [Concomitant]
     Active Substance: METAMIZOLE
     Indication: POLYARTHRITIS
     Dosage: 160 DOSAGE FORM, ONCE A DAY
     Route: 065
  4. CALCIUM DURA [Concomitant]
     Indication: CALCIUM DEFICIENCY
     Dosage: 1000 MILLIGRAM, ONCE A DAY
     Route: 065
  5. OXALIPLATIN. [Suspect]
     Active Substance: OXALIPLATIN
     Dosage: 127.1 MILLIGRAM
     Route: 042
     Dates: start: 20190924, end: 20190924
  6. OXALIPLATIN. [Suspect]
     Active Substance: OXALIPLATIN
     Dosage: 127.1 MILLIGRAM
     Route: 042
     Dates: start: 20191008, end: 20191008
  7. POTASSIUM IODIDE. [Concomitant]
     Active Substance: POTASSIUM IODIDE
     Indication: THYROIDECTOMY
     Dosage: 0.1 MILLIGRAM, EVERY WEEK
     Route: 065
  8. MAGNESIUM JENAPHARM [Concomitant]
     Indication: MAGNESIUM DEFICIENCY
     Dosage: 100 MILLIGRAM, ONCE A DAY
     Route: 065
  9. EUTHYROX [Concomitant]
     Active Substance: LEVOTHYROXINE SODIUM
     Indication: THYROIDECTOMY
     Dosage: 0.1 MILLIGRAM, ONCE A DAY
     Route: 065
  10. PREDNISOLON GALEN [Concomitant]
     Active Substance: PREDNISOLONE
     Indication: PRODUCT USED FOR UNKNOWN INDICATION
     Dosage: 5 MILLIGRAM, ONCE A DAY
     Route: 065
  11. PANTOZOL [Concomitant]
     Active Substance: PANTOPRAZOLE SODIUM
     Indication: ANTACID THERAPY
     Dosage: 40 MILLIGRAM, ONCE A DAY
     Route: 065
  12. SIMVASTATIN. [Concomitant]
     Active Substance: SIMVASTATIN
     Indication: HYPERCHOLESTEROLAEMIA
     Dosage: 20 MILLIGRAM, ONCE A DAY
     Route: 065
  13. MTX HEXAL [Concomitant]
     Active Substance: METHOTREXATE SODIUM
     Indication: POLYARTHRITIS
     Dosage: 15 MILLIGRAM, EVERY WEEK
     Route: 065

REACTIONS (1)
  - Polyneuropathy [Recovered/Resolved]

NARRATIVE: CASE EVENT DATE: 20190916
